FAERS Safety Report 5857764-X (Version None)
Quarter: 2008Q3

REPORT INFORMATION
  Report Type: 
  Country: None (occurrence: None)
  Receive Date: 20080826
  Receipt Date: 20080818
  Transmission Date: 20090109
  Serious: Yes (Hospitalization, Other)
  Sender: FDA-Public Use
  Company Number: US-AMGEN-QUU282364

PATIENT
  Sex: Female
  Weight: 80.4 kg

DRUGS (17)
  1. ENBREL [Suspect]
     Indication: RHEUMATOID ARTHRITIS
     Route: 058
     Dates: start: 20060601
  2. METHOTREXATE SODIUM [Suspect]
     Route: 048
     Dates: start: 19840101
  3. PREDNISONE [Suspect]
     Dates: start: 19840101
  4. NEXIUM [Concomitant]
  5. FOSAMAX [Concomitant]
     Route: 048
  6. ATENOLOL [Concomitant]
     Route: 048
  7. LISINOPRIL [Concomitant]
     Route: 048
  8. FOLIC ACID [Concomitant]
     Route: 048
     Dates: start: 19840101
  9. RELAFEN [Concomitant]
     Route: 048
  10. SYNTHROID [Concomitant]
     Route: 048
  11. FOLATE SODIUM [Concomitant]
  12. PROTONIX [Concomitant]
     Route: 048
  13. OS-CAL [Concomitant]
     Route: 048
  14. PERCOCET [Concomitant]
     Route: 048
  15. COLACE [Concomitant]
     Route: 048
  16. CLINDAMYCIN [Concomitant]
     Route: 048
  17. LEVAQUIN [Concomitant]
     Route: 048

REACTIONS (7)
  - ANGIOPLASTY [None]
  - BALANCE DISORDER [None]
  - CARDIAC FAILURE CONGESTIVE [None]
  - CELLULITIS [None]
  - FALL [None]
  - HUMERUS FRACTURE [None]
  - SKIN ULCER [None]
